FAERS Safety Report 17811465 (Version 1)
Quarter: 2020Q2

REPORT INFORMATION
  Report Type: Spontaneous
  Country: US (occurrence: US)
  Receive Date: 20200521
  Receipt Date: 20200521
  Transmission Date: 20200714
  Serious: No
  Sender: FDA-Public Use
  Company Number: US-PFIZER INC-2020036835

PATIENT
  Age: 71 Year

DRUGS (1)
  1. RELPAX [Suspect]
     Active Substance: ELETRIPTAN HYDROBROMIDE
     Indication: MIGRAINE
     Dosage: 40 MG ( 1-2 TAB (S) AS DIRECTED FOR MIGRAINE 90 DAYS)
     Route: 048

REACTIONS (1)
  - Ill-defined disorder [Unknown]
